FAERS Safety Report 13685356 (Version 2)
Quarter: 2017Q3

REPORT INFORMATION
  Report Type: Spontaneous
  Country: US (occurrence: US)
  Receive Date: 20170623
  Receipt Date: 20170807
  Transmission Date: 20171127
  Serious: No
  Sender: FDA-Public Use
  Company Number: US-GLAXOSMITHKLINE-US2017096454

PATIENT
  Sex: Female
  Weight: 56.69 kg

DRUGS (5)
  1. ADVAIR HFA [Suspect]
     Active Substance: FLUTICASONE PROPIONATE\SALMETEROL XINAFOATE
     Indication: ASTHMA
     Dosage: 2 PUFF(S), BID
     Route: 055
     Dates: start: 20170323, end: 20170714
  2. PREDNISONE. [Concomitant]
     Active Substance: PREDNISONE
  3. LOSARTAN. [Concomitant]
     Active Substance: LOSARTAN
  4. TRAMADOL. [Concomitant]
     Active Substance: TRAMADOL
  5. TRIAM/HCTZ [Concomitant]

REACTIONS (3)
  - Drug effect incomplete [Unknown]
  - Chest discomfort [Not Recovered/Not Resolved]
  - Therapeutic response shortened [Unknown]
